FAERS Safety Report 5565039-1 (Version None)
Quarter: 2007Q4

REPORT INFORMATION
  Report Type: 
  Country: None (occurrence: None)
  Receive Date: 20071218
  Receipt Date: 20071206
  Transmission Date: 20080405
  Serious: No
  Sender: FDA-Public Use
  Company Number: US-BAYER-200713248BCC

PATIENT
  Age: 90 Year
  Sex: Female
  Weight: 46 kg

DRUGS (4)
  1. ALEVE [Suspect]
     Indication: ARTHRITIS
     Dosage: UNIT DOSE: 220 MG
     Route: 048
     Dates: start: 20071003
  2. ALEVE [Suspect]
     Dosage: UNIT DOSE: 220 MG
     Route: 048
     Dates: start: 20071004
  3. TYLENOL (CAPLET) [Concomitant]
  4. ATENOLOL [Concomitant]

REACTIONS (3)
  - ARTHRITIS [None]
  - CONSTIPATION [None]
  - SOMNOLENCE [None]
